FAERS Safety Report 16751741 (Version 1)
Quarter: 2019Q3

REPORT INFORMATION
  Report Type: Spontaneous
  Country: US (occurrence: US)
  Receive Date: 20190828
  Receipt Date: 20190828
  Transmission Date: 20191005
  Serious: No
  Sender: FDA-Public Use
  Company Number: US-TEVA-2019-US-1100253

PATIENT

DRUGS (1)
  1. DICYCLOMINE HCL ACTAVIS [Suspect]
     Active Substance: DICYCLOMINE HYDROCHLORIDE
     Route: 065

REACTIONS (1)
  - Gluten sensitivity [Unknown]
